FAERS Safety Report 8510152 (Version 2)
Quarter: 2012Q4

REPORT INFORMATION
  Report Type: Report from Study
  Country: US (occurrence: None)
  Receive Date: 20120409
  Receipt Date: 20121011
  Transmission Date: 20130627
  Serious: Yes (Hospitalization)
  Sender: FDA-Public Use
  Company Number: 2012AL000032

PATIENT
  Age: 82 Year
  Sex: Male
  Weight: 83 kg

DRUGS (2)
  1. FOLOTYN [Suspect]
     Indication: OESOPHAGEAL ADENOCARCINOMA
     Dosage: 80 MG/M**2; QOW; IV
     Route: 042
     Dates: start: 20120123, end: 20120312
  2. OXALIPLATIN (OXALIPLATIN) [Suspect]
     Indication: OESOPHAGEAL ADENOCARCINOMA
     Dosage: 65 MG/M**2; QOW
     Dates: start: 20120123, end: 20120312

REACTIONS (5)
  - Urinary tract infection [None]
  - Leukocytosis [None]
  - Asthenia [None]
  - Culture urine positive [None]
  - Escherichia infection [None]
